FAERS Safety Report 6437436-3 (Version None)
Quarter: 2009Q4

REPORT INFORMATION
  Report Type: 
  Country: None (occurrence: None)
  Receive Date: 20091112
  Receipt Date: 20091102
  Transmission Date: 20100525
  Serious: Yes (Hospitalization)
  Sender: FDA-Public Use
  Company Number: HK-KINGPHARMUSA00001-K200901382

PATIENT
  Age: 44 Year
  Sex: Female

DRUGS (1)
  1. TAPAZOLE [Suspect]
     Dosage: 15 MG, QD
     Dates: start: 19990101, end: 20040301

REACTIONS (8)
  - ANTI-NEUTROPHIL CYTOPLASMIC ANTIBODY POSITIVE VASCULITIS [None]
  - ARTHRALGIA [None]
  - DYSPNOEA [None]
  - GLOMERULONEPHRITIS [None]
  - HAEMATURIA [None]
  - HAEMOPTYSIS [None]
  - LUNG INFILTRATION [None]
  - PULMONARY HAEMORRHAGE [None]
